FAERS Safety Report 6395976-X (Version None)
Quarter: 2009Q4

REPORT INFORMATION
  Report Type: 
  Country: None (occurrence: None)
  Receive Date: 20091009
  Receipt Date: 20091005
  Transmission Date: 20100525
  Serious: Yes (Death, Hospitalization)
  Sender: FDA-Public Use
  Company Number: PHHY2009BR42981

PATIENT
  Sex: Male

DRUGS (2)
  1. FORASEQ [Suspect]
     Indication: ASTHMA
     Dosage: TWICE A DAY IN WINTER
  2. FORASEQ [Suspect]
     Dosage: ONCE A DAY IN SUMMER

REACTIONS (1)
  - RESPIRATORY FAILURE [None]
